FAERS Safety Report 4389194-4 (Version None)
Quarter: 2004Q3

REPORT INFORMATION
  Report Type: 
  Country: None (occurrence: None)
  Receive Date: 20040701
  Receipt Date: 20040701
  Transmission Date: 20050211
  Serious: Yes (Hospitalization)
  Sender: FDA-Public Use
  Company Number: None

PATIENT
  Sex: Male
  Weight: 119 kg

DRUGS (1)
  1. VINCRISTINE [Suspect]
     Indication: CARCINOMA
     Dosage: 1 MG ONCE INTRAVENOUS
     Route: 042
     Dates: start: 20040520, end: 20040520

REACTIONS (2)
  - NEUROPATHY [None]
  - ORTHOSTATIC HYPOTENSION [None]
